FAERS Safety Report 24466268 (Version 1)
Quarter: 2024Q4

REPORT INFORMATION
  Report Type: Report from Study
  Country: US (occurrence: US)
  Receive Date: 20241018
  Receipt Date: 20241018
  Transmission Date: 20250114
  Serious: No
  Sender: ROCHE
  Company Number: US-ROCHE-3531721

PATIENT
  Age: 60 Year
  Sex: Female

DRUGS (8)
  1. XOLAIR [Suspect]
     Active Substance: OMALIZUMAB
     Indication: Asthma
     Route: 058
  2. LASIX [Concomitant]
     Active Substance: FUROSEMIDE
  3. SINGULAIR [Concomitant]
     Active Substance: MONTELUKAST SODIUM
  4. IPRATROPIUM [Concomitant]
     Active Substance: IPRATROPIUM
  5. ROBAXIN [Concomitant]
     Active Substance: METHOCARBAMOL
  6. TRAMADOL [Concomitant]
     Active Substance: TRAMADOL
  7. LISINOPRIL [Concomitant]
     Active Substance: LISINOPRIL
  8. PROTONIX [Concomitant]
     Active Substance: PANTOPRAZOLE SODIUM

REACTIONS (2)
  - Off label use [Unknown]
  - No adverse event [Unknown]
